FAERS Safety Report 7499163-3 (Version None)
Quarter: 2011Q2

REPORT INFORMATION
  Report Type: 
  Country: None (occurrence: None)
  Receive Date: 20110524
  Receipt Date: 20110516
  Transmission Date: 20111010
  Serious: Yes (Other)
  Sender: FDA-Public Use
  Company Number: FR-JNJFOC-20110506354

PATIENT

DRUGS (4)
  1. NORVIR [Concomitant]
     Indication: HIV INFECTION
     Route: 048
  2. INTELENCE [Suspect]
     Indication: HIV INFECTION
     Route: 048
     Dates: start: 20080101
  3. TELZIR [Concomitant]
     Indication: HIV INFECTION
     Route: 048
     Dates: start: 20080101
  4. VIREAD [Concomitant]
     Indication: HIV INFECTION
     Route: 048
     Dates: start: 20080101

REACTIONS (1)
  - POLYARTERITIS NODOSA [None]
